FAERS Safety Report 6220701 (Version 4)
Quarter: 2020Q2

REPORT INFORMATION
  Report Type: Spontaneous
  Country: DE (occurrence: DE)
  Receive Date: 20070123
  Receipt Date: 20200422
  Transmission Date: 20200714
  Serious: Yes (Hospitalization, Other)
  Sender: FDA-Public Use
  Company Number: DE-JNJFOC-20070102973

PATIENT
  Age: 72 Year
  Sex: Female
  Weight: 59 kg

DRUGS (15)
  1. MTX [Suspect]
     Active Substance: METHOTREXATE SODIUM
     Indication: VASCULITIS
  2. ACTONEL [Concomitant]
     Active Substance: RISEDRONATE SODIUM
     Route: 065
  3. REMICADE [Suspect]
     Active Substance: INFLIXIMAB
     Route: 042
     Dates: start: 20060914, end: 20060914
  4. AUGMENTAN [Concomitant]
     Active Substance: AMOXICILLIN\CLAVULANATE POTASSIUM
     Dosage: 875/125
     Route: 065
     Dates: start: 20061219
  5. REMICADE [Suspect]
     Active Substance: INFLIXIMAB
     Indication: VASCULITIS
     Route: 042
     Dates: start: 20060803, end: 20060803
  6. ASPIRIN. [Concomitant]
     Active Substance: ASPIRIN
     Route: 065
  7. PLAVIX [Concomitant]
     Active Substance: CLOPIDOGREL BISULFATE
     Route: 065
  8. CONCOR [Concomitant]
     Active Substance: BISOPROLOL FUMARATE
     Route: 065
  9. REMICADE [Suspect]
     Active Substance: INFLIXIMAB
     Route: 042
     Dates: start: 20061213, end: 20061213
  10. REMICADE [Suspect]
     Active Substance: INFLIXIMAB
     Route: 042
     Dates: start: 20061026, end: 20061026
  11. MTX [Suspect]
     Active Substance: METHOTREXATE SODIUM
     Indication: TEMPORAL ARTERITIS
     Dosage: 15-20 MG
     Route: 065
  12. FOLSAN [Concomitant]
     Active Substance: FOLIC ACID
     Route: 065
  13. DECORTIN H [Concomitant]
     Active Substance: PREDNISOLONE
     Route: 065
  14. EUTHYROX [Concomitant]
     Active Substance: LEVOTHYROXINE SODIUM
     Route: 065
  15. REMICADE [Suspect]
     Active Substance: INFLIXIMAB
     Indication: TEMPORAL ARTERITIS
     Route: 042
     Dates: start: 20060817, end: 20060817

REACTIONS (21)
  - Encephalitis [Not Recovered/Not Resolved]
  - Disseminated tuberculosis [Recovering/Resolving]
  - Hepatic enzyme increased [Recovered/Resolved]
  - Pyrexia [Unknown]
  - Disturbance in attention [Unknown]
  - Cough [Unknown]
  - Meningitis tuberculous [Not Recovered/Not Resolved]
  - Pulmonary tuberculosis [Unknown]
  - Psychotic disorder [Unknown]
  - Nausea [Unknown]
  - Urticaria [Unknown]
  - General physical health deterioration [Unknown]
  - Tuberculosis of central nervous system [Not Recovered/Not Resolved]
  - Peroneal nerve palsy [Unknown]
  - Enterococcal infection [Unknown]
  - Off label use [Unknown]
  - Sepsis [Unknown]
  - Vasculitis [Unknown]
  - Vomiting [Unknown]
  - Product use in unapproved indication [Unknown]
  - Urinary tract infection [Unknown]

NARRATIVE: CASE EVENT DATE: 20060803
